FAERS Safety Report 6210297-3 (Version None)
Quarter: 2009Q2

REPORT INFORMATION
  Report Type: 
  Country: None (occurrence: None)
  Receive Date: 20090527
  Receipt Date: 20090518
  Transmission Date: 20091009
  Serious: Yes (Hospitalization, Other)
  Sender: FDA-Public Use
  Company Number: 2009005531

PATIENT
  Age: 77 Year
  Sex: Female
  Weight: 77.2 kg

DRUGS (13)
  1. TRISENOX [Suspect]
     Indication: ACUTE MYELOID LEUKAEMIA
     Dosage: 0.2 MG/M2, DAY 1-5 THEN Q WEEKLY; 0.2 MG/M2, DAY 1-5 THEN Q WEEKLY
     Dates: start: 20090422, end: 20090426
  2. TRISENOX [Suspect]
     Indication: ACUTE MYELOID LEUKAEMIA
     Dosage: 0.2 MG/M2, DAY 1-5 THEN Q WEEKLY; 0.2 MG/M2, DAY 1-5 THEN Q WEEKLY
     Dates: start: 20090429
  3. DECITABINE (DECITABINE) [Suspect]
     Indication: ACUTE MYELOID LEUKAEMIA
     Dosage: 20 MG/M2, DAY 1-5
     Dates: start: 20090422, end: 20090426
  4. ASCORBIC ACID [Suspect]
     Indication: ACUTE MYELOID LEUKAEMIA
     Dosage: 1000 MG, DAY 1-5 THEN Q WEEKLY
     Dates: start: 20090422, end: 20090426
  5. VAKTREX (VALACICLOVIR HYDROCHLORIDE) [Concomitant]
  6. MS CONTIN [Concomitant]
  7. LASIX [Concomitant]
  8. NEXIUM [Concomitant]
  9. METOPROLOL (METOPROLOL) [Concomitant]
  10. CLINDAMYCIN HCL [Concomitant]
  11. MULTIVITAMINS (VITAMINS NOS) [Concomitant]
  12. POTASSIUM CHLORIDE [Concomitant]
  13. MS CONTIN [Concomitant]

REACTIONS (8)
  - BARTHOLIN'S ABSCESS [None]
  - DYSPNOEA [None]
  - METASTASES TO LIVER [None]
  - MOUTH ULCERATION [None]
  - MUCOSAL INFLAMMATION [None]
  - PANCYTOPENIA [None]
  - RALES [None]
  - VAGINAL INFECTION [None]
